FAERS Safety Report 10408472 (Version 1)
Quarter: 2014Q3

REPORT INFORMATION
  Report Type: Spontaneous
  Country: US (occurrence: None)
  Receive Date: 20140821
  Receipt Date: 20140821
  Transmission Date: 20150326
  Serious: Yes (Hospitalization)
  Sender: FDA-Public Use
  Company Number: 2014080029

PATIENT
  Age: 80 Year
  Sex: Male

DRUGS (9)
  1. ALDACTONE [Concomitant]
     Active Substance: SPIRONOLACTONE
  2. MARCOUMAR (PHENPROCOUMON) [Concomitant]
     Active Substance: PHENPROCOUMON
  3. SORTIS (ATORVASTATIN CALCIUM) SORTIS (ATORVASTATIN CALCIUM) [Concomitant]
  4. NITRODERM TTS 5 (GLYCERYL TRINITRATE) [Concomitant]
  5. CORDARONE (AMIODARONE HYDROCHLORIDE) [Concomitant]
  6. BELOC (METOPROLOL SUCCINATE) [Concomitant]
  7. COSAAR (LOSARTAN POTASSIUM) [Concomitant]
  8. TOREM (TORASEMIDE) [Suspect]
     Active Substance: TORSEMIDE
     Indication: FLUID RETENTION
     Dates: end: 20140317
  9. TOREM [Suspect]
     Active Substance: TORSEMIDE
     Indication: FLUID RETENTION
     Dates: end: 20140317

REACTIONS (12)
  - Nausea [None]
  - General physical health deterioration [None]
  - Hypovolaemia [None]
  - Headache [None]
  - Weight decreased [None]
  - Orthostatic intolerance [None]
  - Laboratory test abnormal [None]
  - Dizziness [None]
  - Dehydration [None]
  - Presyncope [None]
  - Abdominal pain [None]
  - Vertigo [None]

NARRATIVE: CASE EVENT DATE: 201402
